FAERS Safety Report 6289296-1 (Version None)
Quarter: 2009Q3

REPORT INFORMATION
  Report Type: 
  Country: None (occurrence: None)
  Receive Date: 20090730
  Receipt Date: 20090722
  Transmission Date: 20100115
  Serious: Yes (Hospitalization)
  Sender: FDA-Public Use
  Company Number: US-BIOGENIDEC-2009BI022302

PATIENT
  Age: 59 Year
  Sex: Female

DRUGS (2)
  1. TYSABRI [Suspect]
     Indication: MULTIPLE SCLEROSIS
     Route: 042
     Dates: start: 20070809, end: 20090501
  2. TYSABRI [Suspect]
     Dates: start: 20050201

REACTIONS (2)
  - CAROTID ARTERY OCCLUSION [None]
  - HERPES ZOSTER [None]
